FAERS Safety Report 24647001 (Version 1)
Quarter: 2024Q4

REPORT INFORMATION
  Report Type: Spontaneous
  Country: US (occurrence: US)
  Receive Date: 20241121
  Receipt Date: 20241121
  Transmission Date: 20250114
  Serious: Yes (Hospitalization, Disabling, Other)
  Sender: NOVARTIS
  Company Number: US-002147023-NVSC2024US222926

PATIENT
  Age: 66 Year
  Sex: Female

DRUGS (1)
  1. KYMRIAH [Suspect]
     Active Substance: TISAGENLECLEUCEL
     Indication: Diffuse large B-cell lymphoma refractory
     Dosage: 1 DOSAGE FORM (3.2E8 CAR-POSITIVE VIABLE T-CELLS)
     Route: 042

REACTIONS (3)
  - Cytokine release syndrome [Unknown]
  - Cerebrovascular accident [Not Recovered/Not Resolved]
  - Hemiparesis [Not Recovered/Not Resolved]

NARRATIVE: CASE EVENT DATE: 20241104
